FAERS Safety Report 6282953-2 (Version None)
Quarter: 2009Q3

REPORT INFORMATION
  Report Type: 
  Country: None (occurrence: None)
  Receive Date: 20090724
  Receipt Date: 20090717
  Transmission Date: 20100115
  Serious: Yes (Life-Threatening, Hospitalization)
  Sender: FDA-Public Use
  Company Number: DE-ELI_LILLY_AND_COMPANY-DE200905000863

PATIENT
  Sex: Female
  Weight: 60 kg

DRUGS (4)
  1. GEMZAR [Suspect]
     Indication: PANCREATIC CARCINOMA
     Dosage: 1700 MG, UNK
     Route: 042
     Dates: start: 20081201, end: 20090201
  2. GEMZAR [Suspect]
     Dosage: 200 MG, ON DAY 1 DAY 8 AND 15, CYCLE LENGTH UNKNOWN
     Route: 042
     Dates: start: 20090217
  3. KEVATRIL [Concomitant]
     Indication: NAUSEA
     Dosage: 1 D/F ON DAY 1 DAY 8 AND 15.
     Route: 042
     Dates: start: 20081201, end: 20090201
  4. DEXAMETHASONE [Concomitant]
     Dosage: 4 MG, UNK
     Route: 042
     Dates: start: 20081201, end: 20090201

REACTIONS (5)
  - CAPILLARY LEAK SYNDROME [None]
  - GENERAL PHYSICAL HEALTH DETERIORATION [None]
  - HYPERTONIA [None]
  - HYPOALBUMINAEMIA [None]
  - PLEURAL EFFUSION [None]
